FAERS Safety Report 12633076 (Version 2)
Quarter: 2016Q3

REPORT INFORMATION
  Report Type: Spontaneous
  Country: US (occurrence: US)
  Receive Date: 20160808
  Receipt Date: 20160808
  Transmission Date: 20161109
  Serious: No
  Sender: FDA-Public Use
  Company Number: US-BEH-2016058383

PATIENT
  Sex: Male
  Weight: 93 kg

DRUGS (20)
  1. LISINOPRIL. [Concomitant]
     Active Substance: LISINOPRIL
  2. MELATONIN [Concomitant]
     Active Substance: MELATONIN
  3. PULMICORT TURBUHALER [Concomitant]
     Active Substance: BUDESONIDE
  4. AMLODIPINE [Concomitant]
     Active Substance: AMLODIPINE BESYLATE
  5. CLOBETASOL [Concomitant]
     Active Substance: CLOBETASOL
  6. HIZENTRA [Suspect]
     Active Substance: HUMAN IMMUNOGLOBULIN G
     Route: 058
  7. HIZENTRA [Suspect]
     Active Substance: HUMAN IMMUNOGLOBULIN G
     Dosage: AS DIRECTED
     Dates: start: 20110302
  8. LIDOCAINE/PRILOCAINE [Concomitant]
     Active Substance: LIDOCAINE\PRILOCAINE
  9. EPIPEN [Concomitant]
     Active Substance: EPINEPHRINE
  10. VITAMIN B COMPLEX [Concomitant]
     Active Substance: CYANOCOBALAMIN\DEXPANTHENOL\NIACINAMIDE\PYRIDOXINE HYDROCHLORIDE\RIBOFLAVIN 5^-PHOSPHATE SODIUM\THIAMINE HYDROCHLORIDE\VITAMIN B COMPLEX
  11. CALCIUM [Concomitant]
     Active Substance: CALCIUM
  12. HIZENTRA [Suspect]
     Active Substance: HUMAN IMMUNOGLOBULIN G
     Route: 058
  13. HIZENTRA [Suspect]
     Active Substance: HUMAN IMMUNOGLOBULIN G
     Indication: IMMUNODEFICIENCY COMMON VARIABLE
     Route: 058
  14. DIPHENHYDRAMINE. [Concomitant]
     Active Substance: DIPHENHYDRAMINE
  15. STOOL SOFTNER [Concomitant]
     Active Substance: DOCUSATE SODIUM
  16. FISH OIL [Concomitant]
     Active Substance: FISH OIL
  17. FLONASE [Concomitant]
     Active Substance: FLUTICASONE PROPIONATE
  18. ATORVASTATIN [Concomitant]
     Active Substance: ATORVASTATIN
  19. KLOR-CON [Concomitant]
     Active Substance: POTASSIUM CHLORIDE
  20. AMMONIUM LACTATE. [Concomitant]
     Active Substance: AMMONIUM LACTATE

REACTIONS (2)
  - Productive cough [Unknown]
  - Upper respiratory tract infection [Unknown]
